FAERS Safety Report 12122441 (Version 3)
Quarter: 2016Q2

REPORT INFORMATION
  Report Type: Spontaneous
  Country: BE (occurrence: BE)
  Receive Date: 20160226
  Receipt Date: 20160412
  Transmission Date: 20160815
  Serious: Yes (Death, Other)
  Sender: FDA-Public Use
  Company Number: BE-BIOGEN-2012BI042082

PATIENT
  Age: 42 Year
  Sex: Female
  Weight: 52 kg

DRUGS (1)
  1. TYSABRI [Suspect]
     Active Substance: NATALIZUMAB
     Indication: MULTIPLE SCLEROSIS
     Route: 042
     Dates: start: 20081001, end: 20121001

REACTIONS (2)
  - Progressive multifocal leukoencephalopathy [Fatal]
  - Immune reconstitution inflammatory syndrome [Not Recovered/Not Resolved]

NARRATIVE: CASE EVENT DATE: 20121001
